FAERS Safety Report 9688055 (Version 1)
Quarter: 2013Q4

REPORT INFORMATION
  Report Type: Spontaneous
  Country: US (occurrence: US)
  Receive Date: 20131114
  Receipt Date: 20131114
  Transmission Date: 20140711
  Serious: No
  Sender: FDA-Public Use
  Company Number: US-009507513-1311USA004774

PATIENT
  Sex: 0

DRUGS (2)
  1. PEGINTRON [Suspect]
     Dosage: UNKNOWN
     Route: 058
  2. REBETOL [Suspect]
     Dosage: UNKNOWN
     Route: 048

REACTIONS (1)
  - Muscle atrophy [Unknown]
